FAERS Safety Report 7513923-1 (Version None)
Quarter: 2011Q2

REPORT INFORMATION
  Report Type: 
  Country: None (occurrence: None)
  Receive Date: 20110531
  Receipt Date: 20110525
  Transmission Date: 20111010
  Serious: Yes (Death, Other)
  Sender: FDA-Public Use
  Company Number: PHHY2011JP45357

PATIENT
  Age: 69 Year
  Sex: Female

DRUGS (2)
  1. ZOMETA [Suspect]
     Indication: METASTASES TO BONE
     Route: 042
  2. AREDIA [Suspect]
     Indication: METASTASES TO BONE
     Route: 042

REACTIONS (2)
  - NEOPLASM [None]
  - OSTEONECROSIS OF JAW [None]
